FAERS Safety Report 21458684 (Version 1)
Quarter: 2022Q4

REPORT INFORMATION
  Report Type: Spontaneous
  Country: US (occurrence: None)
  Receive Date: 20221013
  Receipt Date: 20221013
  Transmission Date: 20230113
  Serious: Yes (Other)
  Sender: FDA-Public Use
  Company Number: None

PATIENT
  Age: 18 Year
  Sex: 0

DRUGS (1)
  1. HUMIRA [Suspect]
     Active Substance: ADALIMUMAB

REACTIONS (4)
  - Abdominal discomfort [None]
  - Vomiting [None]
  - Crohn^s disease [None]
  - Tonsillectomy [None]

NARRATIVE: CASE EVENT DATE: 20221013
